FAERS Safety Report 21144433 (Version 1)
Quarter: 2022Q3

REPORT INFORMATION
  Report Type: Spontaneous
  Country: US (occurrence: US)
  Receive Date: 20220728
  Receipt Date: 20220728
  Transmission Date: 20221027
  Serious: No
  Sender: FDA-Public Use
  Company Number: US-PFIZER INC-202201011298

PATIENT
  Sex: Male

DRUGS (2)
  1. GABAPENTIN [Suspect]
     Active Substance: GABAPENTIN
     Dosage: UNK, 3X/DAY
     Dates: start: 202207
  2. GABAPENTIN [Suspect]
     Active Substance: GABAPENTIN
     Dosage: UNK, 1X/DAY, IN THE EVENING
     Dates: start: 202207

REACTIONS (3)
  - Intentional dose omission [Unknown]
  - Anxiety [Unknown]
  - Intentional product use issue [Unknown]

NARRATIVE: CASE EVENT DATE: 20220701
